FAERS Safety Report 9672468 (Version 4)
Quarter: 2014Q1

REPORT INFORMATION
  Report Type: Report from Study
  Country: NL (occurrence: NL)
  Receive Date: 20131106
  Receipt Date: 20140324
  Transmission Date: 20141002
  Serious: Yes (Death, Hospitalization)
  Sender: FDA-Public Use
  Company Number: NL-EXELIXIS-XL18413003567

PATIENT
  Age: 65 Year
  Sex: Male
  Weight: 65 kg

DRUGS (19)
  1. XL184 [Suspect]
     Indication: PROSTATE CANCER
     Dosage: 60 MG, QD
     Route: 048
     Dates: start: 20131002, end: 20131026
  2. XL184 [Suspect]
     Indication: PROSTATE CANCER
     Dosage: 5 MG, BID
     Route: 048
     Dates: start: 20131002, end: 20131026
  3. XGEVA [Concomitant]
  4. AVODART [Concomitant]
  5. LANTUS [Concomitant]
  6. ELIGARD [Concomitant]
  7. MAGNESIUM OXIDE [Concomitant]
  8. FENTANYL [Concomitant]
  9. PCM [Concomitant]
  10. OXYNORM [Concomitant]
  11. PREDNISONE [Concomitant]
  12. MIV [Concomitant]
  13. CALCI CHEW [Concomitant]
  14. NOVORAPID [Concomitant]
  15. SIMVASTATINE [Concomitant]
  16. LOSARTAN POTASSIUM/HYDROCHLOROTHIAZIDE [Concomitant]
  17. ARANESP [Concomitant]
  18. METFORMIN [Concomitant]
  19. EBRANTIL [Concomitant]

REACTIONS (3)
  - Hepatic failure [Not Recovered/Not Resolved]
  - Multi-organ failure [Fatal]
  - Rhabdomyolysis [Not Recovered/Not Resolved]
